FAERS Safety Report 7594253-9 (Version None)
Quarter: 2011Q3

REPORT INFORMATION
  Report Type: 
  Country: None (occurrence: None)
  Receive Date: 20110706
  Receipt Date: 20110706
  Transmission Date: 20111222
  Serious: No
  Sender: FDA-Public Use
  Company Number: None

PATIENT
  Age: 26 Year
  Sex: Male
  Weight: 79.378 kg

DRUGS (2)
  1. PROPECIA [Concomitant]
     Indication: ANDROGENETIC ALOPECIA
     Dosage: 1.25 MG
     Route: 048
     Dates: start: 19970101, end: 20101201
  2. FINASTERIDE [Suspect]
     Indication: ANDROGENETIC ALOPECIA
     Dosage: 1 MG -DID NOT USE BOTH AT SAME
     Route: 048
     Dates: start: 19970101, end: 20101201

REACTIONS (3)
  - SEXUAL DYSFUNCTION [None]
  - TESTICULAR ATROPHY [None]
  - AZOOSPERMIA [None]
